FAERS Safety Report 9768832 (Version 1)
Quarter: 2013Q4

REPORT INFORMATION
  Report Type: Spontaneous
  Country: IT (occurrence: IT)
  Receive Date: 20131218
  Receipt Date: 20131218
  Transmission Date: 20140711
  Serious: Yes (Hospitalization)
  Sender: FDA-Public Use
  Company Number: IT-BRISTOL-MYERS SQUIBB COMPANY-19899632

PATIENT
  Age: 79 Year
  Sex: Female

DRUGS (6)
  1. COUMADIN TABS 5 MG [Suspect]
     Indication: CARDIAC FAILURE
     Route: 048
     Dates: start: 19960315, end: 20130320
  2. CLEXANE [Suspect]
  3. LANOXIN [Concomitant]
  4. LASIX [Concomitant]
  5. ALDACTONE [Concomitant]
  6. ZYLORIC [Concomitant]

REACTIONS (1)
  - Anaemia [Recovered/Resolved]
